FAERS Safety Report 7530242-8 (Version None)
Quarter: 2011Q2

REPORT INFORMATION
  Report Type: 
  Country: None (occurrence: None)
  Receive Date: 20110526
  Receipt Date: 20110520
  Transmission Date: 20111010
  Serious: Yes (Death, Hospitalization, Other)
  Sender: FDA-Public Use
  Company Number: 2011SP002576

PATIENT
  Age: 71 Year
  Sex: Female
  Weight: 56.6996 kg

DRUGS (16)
  1. TEMOZOLOMIDE [Suspect]
     Indication: GLIOBLASTOMA MULTIFORME
     Dosage: PO; PO
     Route: 048
     Dates: start: 20101222, end: 20101223
  2. TEMOZOLOMIDE [Suspect]
     Indication: GLIOBLASTOMA MULTIFORME
     Dosage: PO; PO
     Route: 048
     Dates: start: 20101206, end: 20101221
  3. ABT-888 [Suspect]
     Indication: GLIOBLASTOMA MULTIFORME
     Dosage: 10 MG;BID;PO, 10 MG;BID;PO
     Route: 048
     Dates: start: 20101222, end: 20101223
  4. ABT-888 [Suspect]
     Indication: GLIOBLASTOMA MULTIFORME
     Dosage: 10 MG;BID;PO, 10 MG;BID;PO
     Route: 048
     Dates: start: 20101206, end: 20101221
  5. MULTI-VITAMIN [Concomitant]
  6. PANTOPRAZOLE SODIUM [Concomitant]
  7. BACTRIM [Concomitant]
  8. ZOLPIDEM TARTRATE [Concomitant]
  9. LEVETIRACETAM [Concomitant]
  10. DOCUSATE SODIUM [Concomitant]
  11. METHYLPREDNISOLONE ACETATE [Concomitant]
  12. DEXAMETHASONE [Concomitant]
  13. FUROSEMIDE [Concomitant]
  14. NYSTATIN [Concomitant]
  15. ENOXAPARIN SODIUM [Concomitant]
  16. ONDANSETRON [Concomitant]

REACTIONS (5)
  - ATELECTASIS [None]
  - DEEP VEIN THROMBOSIS [None]
  - PULMONARY EMBOLISM [None]
  - PNEUMOCYSTIS JIROVECI PNEUMONIA [None]
  - PANCYTOPENIA [None]
